FAERS Safety Report 5041016-4 (Version None)
Quarter: 2006Q2

REPORT INFORMATION
  Report Type: 
  Country: None (occurrence: None)
  Receive Date: 20060601
  Receipt Date: 20060307
  Transmission Date: 20061013
  Serious: No
  Sender: FDA-Public Use
  Company Number: 2006PV009826

PATIENT
  Age: 58 Year
  Sex: Male
  Weight: 112.4921 kg

DRUGS (7)
  1. BYETTA [Suspect]
     Indication: DIABETES MELLITUS NON-INSULIN-DEPENDENT
     Dosage: 5 MCG;BID;SC
     Route: 058
     Dates: start: 20060306
  2. GLUCOVANCE [Concomitant]
  3. ACTOS [Concomitant]
  4. ACCUPRIL [Concomitant]
  5. CRESTOR [Concomitant]
  6. TRICOR [Concomitant]
  7. ASPIRIN [Concomitant]

REACTIONS (2)
  - DIZZINESS [None]
  - FEELING ABNORMAL [None]
